FAERS Safety Report 23494147 (Version 1)
Quarter: 2024Q1

REPORT INFORMATION
  Report Type: Spontaneous
  Country: CN (occurrence: CN)
  Receive Date: 20240207
  Receipt Date: 20240207
  Transmission Date: 20240409
  Serious: Yes (Hospitalization, Other)
  Sender: FDA-Public Use
  Company Number: CN-PFIZER INC-PV202400016131

PATIENT
  Age: 76 Year
  Sex: Female
  Weight: 81 kg

DRUGS (5)
  1. ZYVOX [Suspect]
     Active Substance: LINEZOLID
     Indication: Anti-infective therapy
     Dosage: 0.6 G, 2X/DAY
     Route: 041
     Dates: start: 20240126, end: 20240129
  2. IMIPENEM AND CILASTATIN SODIUM [Suspect]
     Active Substance: CILASTATIN SODIUM\IMIPENEM
     Indication: Anti-infective therapy
     Dosage: 1000 MG, 3X/DAY
     Route: 041
     Dates: start: 20240125, end: 20240130
  3. MYCAMINE [Suspect]
     Active Substance: MICAFUNGIN SODIUM
     Indication: Antifungal treatment
     Dosage: 150 MG, 1X/DAY
     Route: 041
     Dates: start: 20240125, end: 20240130
  4. SODIUM CHLORIDE [Concomitant]
     Active Substance: SODIUM CHLORIDE
     Indication: Vehicle solution use
     Dosage: 200 ML, 3X/DAY
     Route: 041
     Dates: start: 20240125, end: 20240130
  5. SODIUM CHLORIDE [Concomitant]
     Active Substance: SODIUM CHLORIDE
     Dosage: 100 ML, 1X/DAY
     Route: 041
     Dates: start: 20240125, end: 20240130

REACTIONS (2)
  - Pruritus [Recovering/Resolving]
  - Rash maculo-papular [Recovering/Resolving]

NARRATIVE: CASE EVENT DATE: 20240128
